FAERS Safety Report 7789955-5 (Version None)
Quarter: 2011Q3

REPORT INFORMATION
  Report Type: 
  Country: None (occurrence: None)
  Receive Date: 20110930
  Receipt Date: 20101027
  Transmission Date: 20111222
  Serious: No
  Sender: FDA-Public Use
  Company Number: US-ASTRAZENECA-2010SE12635

PATIENT
  Age: 66 Year
  Sex: Female
  Weight: 59 kg

DRUGS (1)
  1. ARIMIDEX [Suspect]
     Indication: BREAST CANCER
     Route: 048
     Dates: start: 20100101

REACTIONS (9)
  - DIARRHOEA [None]
  - NIGHT SWEATS [None]
  - HOT FLUSH [None]
  - DECREASED APPETITE [None]
  - ARTHRALGIA [None]
  - VITAMIN D DECREASED [None]
  - ABDOMINAL PAIN [None]
  - WEIGHT DECREASED [None]
  - SWELLING [None]
